FAERS Safety Report 5256312-5 (Version None)
Quarter: 2007Q1

REPORT INFORMATION
  Report Type: 
  Country: None (occurrence: None)
  Receive Date: 20070306
  Receipt Date: 20070222
  Transmission Date: 20070707
  Serious: Yes (Other)
  Sender: FDA-Public Use
  Company Number: PHBS2007VE03540

PATIENT
  Age: 66 Year
  Sex: Male

DRUGS (8)
  1. LAMISIL [Suspect]
     Indication: NAIL TINEA
     Route: 048
     Dates: start: 20070216
  2. LAMISIL [Suspect]
     Indication: FUNGAL SKIN INFECTION
     Route: 061
  3. GLUCOVANCE [Concomitant]
     Dosage: UNK, QD
  4. TRENTAL ^ALBERT-ROUSSEL^ [Concomitant]
     Dosage: UNK, QD
  5. PRETERAX [Concomitant]
     Dosage: UNK, QD
  6. CONCOR [Concomitant]
     Dosage: 5 MG, QD
  7. TELMISARTAN [Concomitant]
     Dosage: UNK, QD
  8. SOMESE [Concomitant]
     Dosage: 0.25 MG/D

REACTIONS (3)
  - ABDOMINAL DISCOMFORT [None]
  - HYPERTENSION [None]
  - SOMNOLENCE [None]
